FAERS Safety Report 6912582-6 (Version None)
Quarter: 2010Q3

REPORT INFORMATION
  Report Type: 
  Country: None (occurrence: None)
  Receive Date: 20100806
  Receipt Date: 20080717
  Transmission Date: 20110219
  Serious: No
  Sender: FDA-Public Use
  Company Number: US-PFIZER INC-2008060223

PATIENT
  Sex: Female

DRUGS (3)
  1. DILANTIN [Suspect]
     Indication: CONVULSION
     Dates: start: 19800101
  2. PROCARDIA [Concomitant]
  3. PREMARIN [Concomitant]

REACTIONS (1)
  - WITHDRAWAL SYNDROME [None]
